FAERS Safety Report 8603902-5 (Version None)
Quarter: 2012Q3

REPORT INFORMATION
  Report Type: 
  Country: None (occurrence: None)
  Receive Date: 20120820
  Receipt Date: 20120809
  Transmission Date: 20120928
  Serious: Yes (Hospitalization, Disabling)
  Sender: FDA-Public Use
  Company Number: GB-AMGEN-GBRCT2011020079

PATIENT
  Age: 29 Year
  Sex: Male
  Weight: 79.7 kg

DRUGS (4)
  1. FOLIC ACID [Concomitant]
     Dosage: UNK
     Dates: start: 20080122
  2. ETANERCEPT [Suspect]
     Dosage: 50 MG, QWK
     Route: 058
     Dates: start: 20110521
  3. METHOTREXATE [Concomitant]
     Dosage: UNK
     Dates: start: 20080122
  4. ETANERCEPT [Suspect]
     Indication: PSORIASIS
     Dosage: 50 MG, QWK
     Route: 058
     Dates: start: 20100804, end: 20110202

REACTIONS (8)
  - EXCORIATION [None]
  - PAIN IN EXTREMITY [None]
  - GROIN PAIN [None]
  - INGUINAL MASS [None]
  - CELLULITIS [None]
  - RASH PRURITIC [None]
  - LYMPHADENOPATHY [None]
  - POSTOPERATIVE WOUND INFECTION [None]
